FAERS Safety Report 7124050-X (Version None)
Quarter: 2010Q4

REPORT INFORMATION
  Report Type: 
  Country: None (occurrence: None)
  Receive Date: 20101126
  Receipt Date: 20101123
  Transmission Date: 20110411
  Serious: Yes (Other)
  Sender: FDA-Public Use
  Company Number: US-PFIZER INC-2010157194

PATIENT
  Sex: Female

DRUGS (1)
  1. CHANTIX [Suspect]
     Dosage: UNK
     Dates: start: 20071220

REACTIONS (11)
  - AFFECTIVE DISORDER [None]
  - AGGRESSION [None]
  - ANXIETY [None]
  - DEPRESSION [None]
  - IMPULSIVE BEHAVIOUR [None]
  - INTENTIONAL SELF-INJURY [None]
  - MENTAL DISORDER [None]
  - PANIC DISORDER WITH AGORAPHOBIA [None]
  - PARANOIA [None]
  - SUICIDE ATTEMPT [None]
  - THINKING ABNORMAL [None]
